FAERS Safety Report 6083744-8 (Version None)
Quarter: 2009Q1

REPORT INFORMATION
  Report Type: 
  Country: None (occurrence: None)
  Receive Date: 20090219
  Receipt Date: 20090218
  Transmission Date: 20090719
  Serious: Yes (Other)
  Sender: FDA-Public Use
  Company Number: CN-PFIZER INC-2009171743

PATIENT

DRUGS (2)
  1. LIPITOR [Suspect]
     Indication: BLOOD CHOLESTEROL INCREASED
     Dosage: FREQUENCY: EVERY DAY;
     Route: 048
     Dates: start: 20070101, end: 20090216
  2. LIPITOR [Suspect]
     Indication: LOW DENSITY LIPOPROTEIN INCREASED

REACTIONS (7)
  - CONSTIPATION [None]
  - GAIT DISTURBANCE [None]
  - INSOMNIA [None]
  - MEMORY IMPAIRMENT [None]
  - MYALGIA [None]
  - RHABDOMYOLYSIS [None]
  - WEIGHT INCREASED [None]
